FAERS Safety Report 7303967-7 (Version None)
Quarter: 2011Q1

REPORT INFORMATION
  Report Type: 
  Country: None (occurrence: None)
  Receive Date: 20110221
  Receipt Date: 20110209
  Transmission Date: 20110831
  Serious: Yes (Other)
  Sender: FDA-Public Use
  Company Number: JP-ROCHE-760047

PATIENT
  Age: 40 Year
  Sex: Male

DRUGS (4)
  1. PREDNISOLONE [Concomitant]
     Dosage: DOSAGE IS UNCERTAIN.
  2. BASILIXIMAB [Concomitant]
     Dosage: DOSAGE IS UNCERATIN
     Route: 041
  3. PROGRAF [Concomitant]
     Dosage: DOSAGE IS UNCERTAIN.
     Route: 065
  4. CELLCEPT [Suspect]
     Indication: PROPHYLAXIS AGAINST TRANSPLANT REJECTION
     Dosage: DOSAGE IS UNCERTAIN
     Route: 048

REACTIONS (2)
  - RENAL ARTERY OCCLUSION [None]
  - LARGE INTESTINE CARCINOMA [None]
